FAERS Safety Report 12250200 (Version 1)
Quarter: 2016Q2

REPORT INFORMATION
  Report Type: Spontaneous
  Country: US (occurrence: US)
  Receive Date: 20160408
  Receipt Date: 20160408
  Transmission Date: 20160815
  Serious: Yes (Other)
  Sender: FDA-Public Use
  Company Number: US-MDT-ADR-2016-00642

PATIENT
  Age: 45 Year
  Sex: Male

DRUGS (2)
  1. MORPHINE DRUG, UNKNOWN [Suspect]
     Active Substance: MORPHINE
     Dosage: 5.5 MG/DAY
     Route: 037
  2. BACLOFEN, UNKNOWN [Suspect]
     Active Substance: BACLOFEN
     Dosage: 13 MCG/DAY
     Route: 037

REACTIONS (6)
  - Paraesthesia [Unknown]
  - Drug withdrawal syndrome [Unknown]
  - Back pain [Unknown]
  - Pain [Unknown]
  - Muscle twitching [Unknown]
  - Muscle spasms [Unknown]

NARRATIVE: CASE EVENT DATE: 20160404
